FAERS Safety Report 15461560 (Version 4)
Quarter: 2018Q4

REPORT INFORMATION
  Report Type: Report from Study
  Country: US (occurrence: US)
  Receive Date: 20181003
  Receipt Date: 20181221
  Transmission Date: 20190204
  Serious: Yes (Hospitalization, Other)
  Sender: FDA-Public Use
  Company Number: US-GILEAD-2018-0366032

PATIENT
  Age: 60 Year
  Sex: Female

DRUGS (1)
  1. AMBRISENTAN [Suspect]
     Active Substance: AMBRISENTAN
     Indication: PRODUCT USED FOR UNKNOWN INDICATION
     Dosage: 10 MG, QD
     Route: 065
     Dates: start: 20171020

REACTIONS (11)
  - Tongue ulceration [Unknown]
  - Fluid retention [Recovering/Resolving]
  - Fatigue [Not Recovered/Not Resolved]
  - Autoimmune disorder [Unknown]
  - Unevaluable event [Unknown]
  - Weight increased [Unknown]
  - Dyspnoea [Recovering/Resolving]
  - Hepatitis [Unknown]
  - Hepatic cirrhosis [Unknown]
  - Cough [Recovered/Resolved]
  - Liver disorder [Not Recovered/Not Resolved]
